FAERS Safety Report 14482976 (Version 2)
Quarter: 2018Q3

REPORT INFORMATION
  Report Type: Report from Study
  Country: RO (occurrence: RO)
  Receive Date: 20180203
  Receipt Date: 20180824
  Transmission Date: 20181010
  Serious: Yes (Other)
  Sender: FDA-Public Use
  Company Number: RO-AUROBINDO-AUR-APL-2018-004800

PATIENT

DRUGS (6)
  1. VIEKIRAX [Concomitant]
     Active Substance: OMBITASVIR\PARITAPREVIR\RITONAVIR
     Indication: HEPATIC CIRRHOSIS
  2. EXVIERA                            /08341302/ [Concomitant]
     Active Substance: DASABUVIR SODIUM MONOHYDRATE
     Indication: CHRONIC HEPATITIS C
     Dosage: ()
  3. VIEKIRAX [Concomitant]
     Active Substance: OMBITASVIR\PARITAPREVIR\RITONAVIR
     Indication: CHRONIC HEPATITIS C
     Dosage: 2 TABLETS IN A SINGLE DAILY DOSE(PARITAPREVIR 75MG BOOSTED WITH RITONAVIR 50MG AND OMBITASVIR 12.5MG
     Route: 048
  4. RIBAVIRIN CAPSULE [Suspect]
     Active Substance: RIBAVIRIN
     Indication: HEPATIC CIRRHOSIS
     Dosage: UNK
     Route: 048
  5. RIBAVIRIN CAPSULE [Suspect]
     Active Substance: RIBAVIRIN
     Indication: CHRONIC HEPATITIS C
  6. EXVIERA                            /08341302/ [Concomitant]
     Active Substance: DASABUVIR SODIUM MONOHYDRATE
     Indication: HEPATIC CIRRHOSIS
     Dosage: TWICE?DAILY ADMINISTRATION (2)
     Route: 065

REACTIONS (1)
  - Bilirubin conjugated increased [Unknown]
